FAERS Safety Report 7142652-1 (Version None)
Quarter: 2010Q4

REPORT INFORMATION
  Report Type: 
  Country: None (occurrence: None)
  Receive Date: 20101207
  Receipt Date: 20101203
  Transmission Date: 20110411
  Serious: Yes (Death)
  Sender: FDA-Public Use
  Company Number: US-ABBOTT-10P-163-0689381-00

PATIENT
  Age: 45 Year
  Sex: Male

DRUGS (9)
  1. HUMIRA [Suspect]
     Indication: CROHN'S DISEASE
     Dates: end: 20101001
  2. VALIUM [Concomitant]
     Indication: PRODUCT USED FOR UNKNOWN INDICATION
  3. ALBUTEROL [Concomitant]
     Indication: ASTHMA
  4. ADVAIR [Concomitant]
     Indication: ASTHMA
  5. AMBIEN [Concomitant]
     Indication: INSOMNIA
  6. FENTANYL [Concomitant]
     Indication: PAIN
     Dosage: PATCHES EVERY 72 HOURS
  7. LIDODERM [Concomitant]
     Indication: PRODUCT USED FOR UNKNOWN INDICATION
  8. REMERON [Concomitant]
     Indication: DEPRESSION
  9. RISPERDAL [Concomitant]
     Indication: DEPRESSION

REACTIONS (1)
  - UNRESPONSIVE TO STIMULI [None]
